FAERS Safety Report 16564172 (Version 1)
Quarter: 2019Q3

REPORT INFORMATION
  Report Type: Spontaneous
  Country: JP (occurrence: JP)
  Receive Date: 20190712
  Receipt Date: 20190712
  Transmission Date: 20191004
  Serious: Yes (Other)
  Sender: FDA-Public Use
  Company Number: JP-INGENUS PHARMACEUTICALS, LLC-2019INF000211

PATIENT
  Age: 66 Year
  Sex: Female

DRUGS (6)
  1. LEVOLEUCOVORIN CALCIUM. [Suspect]
     Active Substance: LEVOLEUCOVORIN CALCIUM
     Indication: PANCREATIC CARCINOMA RECURRENT
     Dosage: 200 MILLIGRAM/SQ. METER, FOR 7 COURSES
     Route: 065
  2. OXALIPLATIN. [Suspect]
     Active Substance: OXALIPLATIN
     Dosage: 65 MILLIGRAM/SQ. METER, DURING 6 TH COURSE
     Route: 065
  3. IRINOTECAN HYDROCHLORIDE. [Suspect]
     Active Substance: IRINOTECAN HYDROCHLORIDE
     Indication: PANCREATIC CARCINOMA RECURRENT
     Dosage: 180 MILLIGRAM/SQ. METER, FOR 4 COURSES
     Route: 065
  4. OXALIPLATIN. [Suspect]
     Active Substance: OXALIPLATIN
     Indication: PANCREATIC CARCINOMA RECURRENT
     Dosage: 85 MILLIGRAM/SQ. METER, FOR 5 COURSES
     Route: 065
  5. 5-FLUOROURACIL [Suspect]
     Active Substance: FLUOROURACIL
     Indication: PANCREATIC CARCINOMA RECURRENT
     Dosage: 400 MILLIGRAM/SQ. METER, BOLUS, FOR 7 COURSES
     Route: 065
  6. 5-FLUOROURACIL [Suspect]
     Active Substance: FLUOROURACIL
     Dosage: 2400 MILLIGRAM/SQ. METER, FOR 7 COURSES
     Route: 065

REACTIONS (4)
  - Neutropenia [Recovering/Resolving]
  - Diarrhoea [Recovering/Resolving]
  - Decreased appetite [Not Recovered/Not Resolved]
  - Neuropathy peripheral [Recovered/Resolved]
